FAERS Safety Report 6807580-7 (Version None)
Quarter: 2010Q2

REPORT INFORMATION
  Report Type: 
  Country: None (occurrence: None)
  Receive Date: 20100625
  Receipt Date: 20100617
  Transmission Date: 20101027
  Serious: Yes (Hospitalization)
  Sender: FDA-Public Use
  Company Number: 1000014566

PATIENT
  Age: 78 Year
  Sex: Male

DRUGS (7)
  1. LEXAPRO [Suspect]
     Indication: DEPRESSION
     Dosage: 20 MG (20 MG, 1 IN 1 D), ORAL
     Route: 048
     Dates: start: 20100310
  2. GEODON [Concomitant]
  3. SIMVASTATIN [Concomitant]
  4. TRILIPIX [Concomitant]
  5. REMERON [Concomitant]
  6. CLONAZEPAM [Concomitant]
  7. AZOR [Concomitant]

REACTIONS (6)
  - ASTHENIA [None]
  - BLOOD PRESSURE DIASTOLIC DECREASED [None]
  - DIZZINESS [None]
  - LETHARGY [None]
  - LOSS OF CONSCIOUSNESS [None]
  - SKIN LACERATION [None]
